FAERS Safety Report 9241799 (Version 8)
Quarter: 2014Q3

REPORT INFORMATION
  Report Type: Report from Study
  Country: US (occurrence: US)
  Receive Date: 20130419
  Receipt Date: 20140917
  Transmission Date: 20150326
  Serious: Yes (Hospitalization)
  Sender: FDA-Public Use
  Company Number: US-ACTELION-A-NJ2013-81367

PATIENT
  Age: 63 Year
  Sex: Female

DRUGS (4)
  1. VELETRI [Suspect]
     Active Substance: EPOPROSTENOL
     Indication: PULMONARY ARTERIAL HYPERTENSION
     Dosage: 35 NG/KG, PER MIN
     Route: 042
     Dates: start: 20120716
  2. COUMADIN [Concomitant]
     Active Substance: WARFARIN SODIUM
  3. SILDENAFIL [Concomitant]
     Active Substance: SILDENAFIL
  4. VELETRI [Suspect]
     Active Substance: EPOPROSTENOL
     Dosage: 68 NG/KG, PER MIN
     Route: 042

REACTIONS (12)
  - Lung transplant [Unknown]
  - Tachycardia [Unknown]
  - Pulmonary hypertension [Unknown]
  - Thrombosis [Recovering/Resolving]
  - Cough [Recovering/Resolving]
  - Dyspnoea [Recovering/Resolving]
  - Device issue [Unknown]
  - Hyperthyroidism [Unknown]
  - Oxygen saturation decreased [Unknown]
  - Gastroenteritis viral [Recovering/Resolving]
  - Malaise [Unknown]
  - Bronchitis [Unknown]
